FAERS Safety Report 17012719 (Version 1)
Quarter: 2019Q4

REPORT INFORMATION
  Report Type: Spontaneous
  Country: US (occurrence: US)
  Receive Date: 20191109
  Receipt Date: 20191109
  Transmission Date: 20200122
  Serious: No
  Sender: FDA-Public Use
  Company Number: US-DRREDDYS-USA/USA/19/0115732

PATIENT
  Age: 73 Year
  Sex: Male
  Weight: 58.5 kg

DRUGS (1)
  1. HABITROL [Suspect]
     Active Substance: NICOTINE
     Indication: TOBACCO USER
     Route: 062
     Dates: start: 20191027, end: 20191027

REACTIONS (2)
  - Application site irritation [Recovering/Resolving]
  - Application site rash [Unknown]

NARRATIVE: CASE EVENT DATE: 20191027
